FAERS Safety Report 8342100-X (Version None)
Quarter: 2012Q2

REPORT INFORMATION
  Report Type: 
  Country: None (occurrence: None)
  Receive Date: 20120507
  Receipt Date: 20120503
  Transmission Date: 20120825
  Serious: No
  Sender: FDA-Public Use
  Company Number: US-PFIZER INC-2012109707

PATIENT
  Sex: Female
  Weight: 52.154 kg

DRUGS (10)
  1. TACROLIMUS [Concomitant]
     Indication: LIVER TRANSPLANT
     Dosage: 4 MG, 2X/DAY
  2. OMEPRAZOLE [Concomitant]
     Indication: GASTROOESOPHAGEAL REFLUX DISEASE
     Dosage: 20 MG, 2X/DAY
  3. HYDROCODONE BITARTRATE + ACETAMINOPHEN [Concomitant]
     Indication: PAIN
     Dosage: 10/325 MG, EVERY 4 HRS
  4. CHANTIX [Suspect]
     Dosage: 0.5 MG, 2X/DAY
     Route: 048
     Dates: end: 20120201
  5. LORAZEPAM [Concomitant]
     Indication: DEPRESSION
     Dosage: 0.5 MG, 3X/DAY
  6. CHANTIX [Suspect]
     Indication: SMOKING CESSATION THERAPY
     Dosage: 0.5 MG, DAILY
     Route: 048
     Dates: start: 20111201
  7. LEVOTHYROXINE [Concomitant]
     Indication: THYROID DISORDER
     Dosage: 75 UG,DAILY
  8. FUROSEMIDE [Concomitant]
     Indication: DIURETIC THERAPY
     Dosage: 40 MG, 2X/DAY
  9. METOPROLOL [Concomitant]
     Indication: BLOOD PRESSURE ABNORMAL
     Dosage: 25 MG, 2X/DAY
  10. AMITRIPTYLINE [Concomitant]
     Indication: DEPRESSION
     Dosage: 100 MG,DAILY

REACTIONS (1)
  - NAUSEA [None]
